FAERS Safety Report 6701127-1 (Version None)
Quarter: 2010Q2

REPORT INFORMATION
  Report Type: 
  Country: None (occurrence: None)
  Receive Date: 20100428
  Receipt Date: 20100428
  Transmission Date: 20101027
  Serious: Yes (Death)
  Sender: FDA-Public Use
  Company Number: None

PATIENT
  Age: 96 Year
  Sex: Female
  Weight: 58.9676 kg

DRUGS (2)
  1. PLAVIX [Suspect]
     Indication: MYOCARDIAL INFARCTION
     Dosage: 300 MGS AT ER
     Dates: start: 20091224, end: 20091224
  2. PLAVIX [Suspect]
     Indication: MYOCARDIAL INFARCTION
     Dosage: 75 MGS DAILY
     Dates: start: 20091225, end: 20100109

REACTIONS (7)
  - CONTUSION [None]
  - HAEMATEMESIS [None]
  - HYPOPHAGIA [None]
  - MASS [None]
  - MYOCARDIAL INFARCTION [None]
  - NAUSEA [None]
  - RECTAL HAEMORRHAGE [None]
